FAERS Safety Report 19953659 (Version 3)
Quarter: 2021Q4

REPORT INFORMATION
  Report Type: Report from Study
  Country: US (occurrence: US)
  Receive Date: 20211014
  Receipt Date: 20211112
  Transmission Date: 20220303
  Serious: Yes (Other)
  Sender: FDA-Public Use
  Company Number: US-SANOFI-00804932

PATIENT
  Age: 61 Year
  Sex: Female

DRUGS (3)
  1. DUPILUMAB [Suspect]
     Active Substance: DUPILUMAB
     Indication: Granuloma
     Dosage: 600 MG
     Route: 058
  2. DUPILUMAB [Suspect]
     Active Substance: DUPILUMAB
     Dosage: 300 MG, Q4W
     Route: 058
  3. DUPILUMAB [Suspect]
     Active Substance: DUPILUMAB
     Dosage: 300 MG, QOW
     Route: 058

REACTIONS (11)
  - Granuloma [Unknown]
  - Erythema [Unknown]
  - Skin discolouration [Unknown]
  - Precancerous condition [Unknown]
  - Condition aggravated [Unknown]
  - Dyspepsia [Unknown]
  - Visual impairment [Unknown]
  - Injection site pain [Unknown]
  - Drug ineffective for unapproved indication [Unknown]
  - Product use issue [Unknown]
  - Product storage error [Unknown]
